FAERS Safety Report 9056546 (Version 1)
Quarter: 2013Q1

REPORT INFORMATION
  Report Type: Spontaneous
  Country: FR (occurrence: FR)
  Receive Date: 20130204
  Receipt Date: 20130204
  Transmission Date: 20140127
  Serious: Yes (Death, Congenital Anomaly)
  Sender: FDA-Public Use
  Company Number: FR-GLAXOSMITHKLINE-B0862870B

PATIENT
  Age: 0 None
  Sex: Female

DRUGS (1)
  1. LAMICTAL [Suspect]
     Indication: EPILEPSY
     Dosage: 250MG PER DAY
     Route: 064
     Dates: end: 20121025

REACTIONS (3)
  - Anencephaly [Fatal]
  - Neural tube defect [Fatal]
  - Foetal exposure during pregnancy [Unknown]
